FAERS Safety Report 14249468 (Version 2)
Quarter: 2017Q4

REPORT INFORMATION
  Report Type: Spontaneous
  Country: GB (occurrence: GB)
  Receive Date: 20171204
  Receipt Date: 20171211
  Transmission Date: 20180321
  Serious: Yes (Other)
  Sender: FDA-Public Use
  Company Number: GB-MYLANLABS-2017M1076179

PATIENT
  Age: 52 Year
  Sex: Female

DRUGS (2)
  1. CLOZARIL [Suspect]
     Active Substance: CLOZAPINE
     Indication: PRODUCT USED FOR UNKNOWN INDICATION
     Dosage: UNK
     Route: 048
  2. CLOZARIL [Suspect]
     Active Substance: CLOZAPINE
     Dosage: UNK
     Route: 048
     Dates: start: 20170912, end: 2017

REACTIONS (6)
  - Lower respiratory tract infection [Recovered/Resolved]
  - Ulcer [Recovered/Resolved]
  - White blood cell count decreased [Recovered/Resolved]
  - Thrombocytopenia [Recovered/Resolved]
  - Haemoglobin decreased [Recovering/Resolving]
  - Infection [Recovered/Resolved]

NARRATIVE: CASE EVENT DATE: 2017
